FAERS Safety Report 15901626 (Version 2)
Quarter: 2019Q1

REPORT INFORMATION
  Report Type: Spontaneous
  Country: GB (occurrence: GB)
  Receive Date: 20190201
  Receipt Date: 20190225
  Transmission Date: 20190417
  Serious: Yes (Hospitalization, Other)
  Sender: FDA-Public Use
  Company Number: PHHY2019GB007345

PATIENT
  Age: 67 Year
  Sex: Female
  Weight: 48 kg

DRUGS (6)
  1. TINZAPARIN [Concomitant]
     Active Substance: TINZAPARIN
     Indication: ANTICOAGULANT THERAPY
     Dosage: UNK
     Route: 065
  2. RITUXIMAB. [Concomitant]
     Active Substance: RITUXIMAB
     Indication: PURPURA
     Dosage: 1000 MG, QW
     Route: 042
     Dates: start: 20180710, end: 20180805
  3. REVOLADE [Suspect]
     Active Substance: ELTROMBOPAG
     Dosage: 50 MG, UNK
     Route: 065
     Dates: start: 20181025, end: 20181203
  4. METHYLPREDNISOLONE. [Concomitant]
     Active Substance: METHYLPREDNISOLONE
     Indication: PURPURA
     Dosage: 500 MG, UNK
     Route: 042
     Dates: start: 20180705, end: 20180705
  5. MMF [Concomitant]
     Active Substance: MYCOPHENOLATE MOFETIL
     Indication: PURPURA
     Dosage: 500 MG, BID
     Route: 048
     Dates: start: 20180710, end: 20180805
  6. REVOLADE [Suspect]
     Active Substance: ELTROMBOPAG
     Indication: IMMUNE THROMBOCYTOPENIC PURPURA
     Dosage: 50 MG, UNK
     Route: 048
     Dates: start: 201807

REACTIONS (6)
  - Haemorrhage [Unknown]
  - Intestinal ischaemia [Recovered/Resolved]
  - Intestinal infarction [Recovered/Resolved]
  - Contusion [Unknown]
  - Petechiae [Unknown]
  - Portal vein thrombosis [Not Recovered/Not Resolved]

NARRATIVE: CASE EVENT DATE: 20180805
